FAERS Safety Report 12481087 (Version 2)
Quarter: 2016Q2

REPORT INFORMATION
  Report Type: Spontaneous
  Country: US (occurrence: US)
  Receive Date: 20160620
  Receipt Date: 20160627
  Transmission Date: 20160815
  Serious: Yes (Other)
  Sender: FDA-Public Use
  Company Number: US-BRISTOL-MYERS SQUIBB COMPANY-BMS-2016-046815

PATIENT

DRUGS (1)
  1. NULOJIX [Suspect]
     Active Substance: BELATACEPT
     Indication: TRANSPLANT
     Dosage: 10 MG/KG, UNK
     Route: 065

REACTIONS (5)
  - Pyrexia [Unknown]
  - Neutropenia [Unknown]
  - Acute kidney injury [Unknown]
  - Leukopenia [Unknown]
  - Serum sickness [Unknown]
